FAERS Safety Report 4977726-4 (Version None)
Quarter: 2006Q2

REPORT INFORMATION
  Report Type: 
  Country: None (occurrence: None)
  Receive Date: 20060414
  Receipt Date: 20060403
  Transmission Date: 20061013
  Serious: Yes (Life-Threatening)
  Sender: FDA-Public Use
  Company Number: HQWYE640205APR06

PATIENT
  Age: 63 Year
  Sex: Male

DRUGS (4)
  1. MYLOTARG [Suspect]
     Indication: ACUTE MYELOID LEUKAEMIA
     Dosage: 9 MG/M^2 1X PER 1 DAY INTRAVENOUS DRIP
     Route: 041
     Dates: start: 20060207, end: 20060207
  2. LEVOFLOXACIN [Concomitant]
  3. DIFLUCAN [Concomitant]
  4. SULPERAZONE (CEFOPERAZONE SODIUM/SULBACTAM SODIUM) [Concomitant]

REACTIONS (6)
  - ACUTE MONOCYTIC LEUKAEMIA [None]
  - C-REACTIVE PROTEIN INCREASED [None]
  - INFECTION [None]
  - MALIGNANT NEOPLASM PROGRESSION [None]
  - NEUTROPHIL COUNT DECREASED [None]
  - PLATELET COUNT DECREASED [None]
